FAERS Safety Report 10929169 (Version 1)
Quarter: 2015Q1

REPORT INFORMATION
  Report Type: Spontaneous
  Country: US (occurrence: None)
  Receive Date: 20150224
  Receipt Date: 20150224
  Transmission Date: 20150721
  Serious: Yes (Hospitalization)
  Sender: FDA-Public Use
  Company Number: US-2014-1054

PATIENT
  Age: 82 Year
  Sex: Female
  Weight: 57 kg

DRUGS (10)
  1. FLECAINE (FLECAINIDE ACETAT) [Concomitant]
  2. EUPANTOL [Concomitant]
     Active Substance: PANTOPRAZOLE SODIUM
  3. CETIRIZINE [Concomitant]
     Active Substance: CETIRIZINE HYDROCHLORIDE
  4. APROVEL (IRBESARTAN) [Concomitant]
  5. LASILIX (FUROSEMIDE) [Concomitant]
     Active Substance: FUROSEMIDE
  6. ATORVASTATIN [Concomitant]
     Active Substance: ATORVASTATIN
  7. NAVELBINE [Suspect]
     Active Substance: VINORELBINE TARTRATE
     Indication: LUNG NEOPLASM MALIGNANT
     Dosage: 46 MG, ON DAY 1, DAY 8 AND DAY 15
     Route: 042
     Dates: start: 20130312
  8. RIVAROXABAN [Concomitant]
     Active Substance: RIVAROXABAN
  9. KARDEGIC [Concomitant]
     Active Substance: ASPIRIN LYSINE
  10. DACOMITINIB [Suspect]
     Active Substance: DACOMITINIB
     Indication: NON-SMALL CELL LUNG CANCER
     Dosage: 45 MG, QD (1/DAY)
     Route: 048
     Dates: start: 20130114, end: 20130312

REACTIONS (1)
  - Febrile neutropenia [None]

NARRATIVE: CASE EVENT DATE: 20130328
